FAERS Safety Report 8567264-4 (Version None)
Quarter: 2012Q3

REPORT INFORMATION
  Report Type: 
  Country: None (occurrence: None)
  Receive Date: 20120803
  Receipt Date: 20120723
  Transmission Date: 20120928
  Serious: Yes (Other)
  Sender: FDA-Public Use
  Company Number: PHHY2012MX065926

PATIENT

DRUGS (11)
  1. OMEPRAZOLE [Concomitant]
     Indication: GASTRITIS
  2. LEVOTHYROXINE SODIUM [Concomitant]
     Indication: HYPOTHYROIDISM
     Dosage: 75 MG, 2 EVERY 24 HOURS
  3. METOCLOPRAMIDE [Concomitant]
     Indication: GASTRITIS
  4. OMEPRAZOLE [Concomitant]
     Indication: GASTROOESOPHAGEAL REFLUX DISEASE
     Dosage: 40 MG, QD TWO DOSE
     Dates: start: 20100101
  5. THEOPHYLLINE [Concomitant]
     Dosage: 100 MG, 2 EVERY 24 HOURS
  6. LORATADINE [Concomitant]
     Indication: HYPERSENSITIVITY
     Dosage: 10 MG, 1 EVERY 24 HOURS
     Dates: start: 20100101
  7. COMBIVENT [Concomitant]
     Indication: ANTASTHMATIC DRUG LEVEL
     Dosage: 4 SHOTS
     Dates: start: 20090101
  8. METOCLOPRAMIDE [Concomitant]
     Indication: GASTROOESOPHAGEAL REFLUX DISEASE
     Dosage: 10 MG  THREE DOSE
     Dates: start: 20120401
  9. ONBREZ [Suspect]
     Indication: CHRONIC OBSTRUCTIVE PULMONARY DISEASE
     Dosage: 300 UG, QD ONE APPLICATION 1 EVERY 24 HOURS
     Dates: start: 20120301
  10. IRBESARTAN AND HYDROCHLOROTHIAZIDE [Concomitant]
     Indication: HYPERTENSION
     Dosage: 200 MG, UNK
     Dates: start: 20020101
  11. FLUTICASONE PROPIONATE/SALMETEROL [Concomitant]
     Indication: ANTASTHMATIC DRUG LEVEL THERAPEUTIC
     Dosage: 500 MG, 2 SHOTS
     Dates: start: 20090101

REACTIONS (4)
  - CHOLESTEROSIS [None]
  - DIZZINESS [None]
  - BLOOD PRESSURE FLUCTUATION [None]
  - COUGH [None]
